FAERS Safety Report 25982253 (Version 2)
Quarter: 2025Q4

REPORT INFORMATION
  Report Type: Report from Study
  Country: BR (occurrence: BR)
  Receive Date: 20251031
  Receipt Date: 20251229
  Transmission Date: 20260119
  Serious: Yes (Hospitalization, Other)
  Sender: ALEXION PHARMACEUTICALS
  Company Number: BR-AstraZeneca-CH-00979163A

PATIENT
  Age: 43 Year
  Sex: Male

DRUGS (1)
  1. SOLIRIS [Suspect]
     Active Substance: ECULIZUMAB
     Indication: Paroxysmal nocturnal haemoglobinuria
     Dosage: 900 MILLIGRAM, EVERY 3 MONTHS
     Dates: start: 201006

REACTIONS (5)
  - Haemolysis [Unknown]
  - Anaemia [Unknown]
  - Product supply issue [Unknown]
  - Disease recurrence [Unknown]
  - Therapy partial responder [Unknown]
